FAERS Safety Report 8425215-7 (Version None)
Quarter: 2012Q2

REPORT INFORMATION
  Report Type: 
  Country: None (occurrence: None)
  Receive Date: 20120611
  Receipt Date: 20120529
  Transmission Date: 20120825
  Serious: Yes (Hospitalization)
  Sender: FDA-Public Use
  Company Number: US-ELI_LILLY_AND_COMPANY-US201106004063

PATIENT
  Sex: Female

DRUGS (17)
  1. FORTEO [Suspect]
     Dosage: 20 UG, QD
     Dates: start: 20110613
  2. FORTEO [Suspect]
     Dosage: 20 UG, QD
  3. CALCIUM CARBONATE [Concomitant]
  4. PREDNISONE TAB [Concomitant]
  5. ASPIRIN [Concomitant]
  6. BACTRIM [Concomitant]
  7. OMEPRAZOLE [Concomitant]
  8. SYNTHROID [Concomitant]
  9. POSACONAZOLE [Concomitant]
  10. CELLCEPT [Concomitant]
  11. VALCYTE [Concomitant]
  12. FORTEO [Suspect]
     Indication: OSTEOPOROSIS
     Dosage: 20 UG, QD
     Dates: start: 20110608, end: 20110610
  13. FORTEO [Suspect]
     Dosage: 20 UG, QD
     Dates: start: 20110701
  14. AMBIEN [Concomitant]
  15. SIROLIMUS [Concomitant]
  16. PRAVASTATIN [Concomitant]
  17. STARLIX [Concomitant]

REACTIONS (6)
  - BONE PAIN [None]
  - MALAISE [None]
  - HOSPITALISATION [None]
  - DRUG DOSE OMISSION [None]
  - BACK PAIN [None]
  - INCORRECT STORAGE OF DRUG [None]
